FAERS Safety Report 6396225-9 (Version None)
Quarter: 2009Q4

REPORT INFORMATION
  Report Type: 
  Country: None (occurrence: None)
  Receive Date: 20091012
  Receipt Date: 20070615
  Transmission Date: 20100525
  Serious: Yes (Other)
  Sender: FDA-Public Use
  Company Number: US-ASTRAZENECA-2006UW22134

PATIENT
  Age: 12007 Day
  Sex: Male
  Weight: 90.7 kg

DRUGS (24)
  1. SEROQUEL [Suspect]
     Indication: SCHIZOPHRENIA
     Route: 048
     Dates: start: 19951028
  2. SEROQUEL [Suspect]
     Indication: DEPRESSION
     Route: 048
     Dates: start: 19951028
  3. SEROQUEL [Suspect]
     Indication: SLEEP DISORDER
     Route: 048
     Dates: start: 19951028
  4. SEROQUEL [Suspect]
     Indication: ANXIETY
     Route: 048
     Dates: start: 19951028
  5. SEROQUEL [Suspect]
     Route: 048
     Dates: start: 19970101
  6. SEROQUEL [Suspect]
     Route: 048
     Dates: start: 19970101
  7. SEROQUEL [Suspect]
     Route: 048
     Dates: start: 19970101
  8. SEROQUEL [Suspect]
     Route: 048
     Dates: start: 19970101
  9. SEROQUEL [Suspect]
     Route: 048
     Dates: start: 20041208
  10. SEROQUEL [Suspect]
     Route: 048
     Dates: start: 20041208
  11. SEROQUEL [Suspect]
     Route: 048
     Dates: start: 20041208
  12. SEROQUEL [Suspect]
     Route: 048
     Dates: start: 20041208
  13. RISPERDAL [Concomitant]
     Dates: start: 19951028
  14. TRILAFON [Concomitant]
     Dates: start: 19980619
  15. MELLARIL [Concomitant]
     Dates: start: 19960619
  16. TRAZODONE HCL [Concomitant]
     Dates: start: 19980101
  17. PROZAC [Concomitant]
     Dates: start: 19950101
  18. LORAZEPAM [Concomitant]
     Dates: start: 19960101
  19. LITHIUM GABONETE [Concomitant]
     Dates: start: 19960101
  20. PRAVACHOL [Concomitant]
     Route: 048
     Dates: start: 20011220
  21. VICODIN [Concomitant]
     Dosage: EVERY SIX HOURLY
     Route: 048
     Dates: start: 20000810
  22. ZEGERID [Concomitant]
     Dates: start: 20060525
  23. TRICOR [Concomitant]
     Dates: start: 20060525
  24. DIOVAN [Concomitant]
     Dates: start: 20060525

REACTIONS (8)
  - DIABETES MELLITUS [None]
  - DIABETES MELLITUS INADEQUATE CONTROL [None]
  - DIABETIC KETOACIDOSIS [None]
  - DIABETIC NEUROPATHY [None]
  - KETOACIDOSIS [None]
  - METABOLIC SYNDROME [None]
  - TARDIVE DYSKINESIA [None]
  - TYPE 2 DIABETES MELLITUS [None]
